FAERS Safety Report 6408207-9 (Version None)
Quarter: 2009Q4

REPORT INFORMATION
  Report Type: 
  Country: None (occurrence: None)
  Receive Date: 20091021
  Receipt Date: 20091014
  Transmission Date: 20100525
  Serious: Yes (Other)
  Sender: FDA-Public Use
  Company Number: US-ROCHE-662650

PATIENT
  Sex: Female
  Weight: 72.6 kg

DRUGS (4)
  1. CAPECITABINE [Suspect]
     Dosage: AM AND PM
     Route: 048
     Dates: start: 20090806
  2. METHOTREXATE [Concomitant]
     Dosage: VIA OMAYA RESERVOIR
  3. TRAZALON [Concomitant]
     Dosage: DRUG REPORTED: TRAZADONE
  4. ATENOLOL [Concomitant]

REACTIONS (4)
  - DIZZINESS [None]
  - GAIT DISTURBANCE [None]
  - METASTASES TO LYMPH NODES [None]
  - VISUAL IMPAIRMENT [None]
